FAERS Safety Report 10407542 (Version 2)
Quarter: 2015Q1

REPORT INFORMATION
  Report Type: Spontaneous
  Country: US (occurrence: US)
  Receive Date: 20140825
  Receipt Date: 20150102
  Transmission Date: 20150720
  Serious: Yes (Hospitalization, Disabling, Other)
  Sender: FDA-Public Use
  Company Number: US-PFIZER INC-2014232792

PATIENT
  Age: 72 Year
  Sex: Male

DRUGS (8)
  1. DEPO-TESTOSTERONE [Suspect]
     Active Substance: TESTOSTERONE CYPIONATE
     Indication: HOT FLUSH
  2. TESTOSTERONE. [Suspect]
     Active Substance: TESTOSTERONE
     Indication: HORMONE REPLACEMENT THERAPY
     Dosage: UNK, AS DIRECTED
     Dates: start: 20021021
  3. DEPO-TESTOSTERONE [Suspect]
     Active Substance: TESTOSTERONE CYPIONATE
     Indication: HORMONE REPLACEMENT THERAPY
  4. ANDRODERM [Suspect]
     Active Substance: TESTOSTERONE
     Indication: HORMONE REPLACEMENT THERAPY
     Dosage: UNK, AS DIRECTED
     Dates: start: 20030124
  5. ANDRODERM [Suspect]
     Active Substance: TESTOSTERONE
     Indication: HOT FLUSH
  6. TESTOSTERONE. [Suspect]
     Active Substance: TESTOSTERONE
     Indication: HOT FLUSH
  7. DEPO-TESTOSTERONE [Suspect]
     Active Substance: TESTOSTERONE CYPIONATE
     Indication: BLOOD TESTOSTERONE DECREASED
     Dosage: UNK, AS DIRECTED
     Dates: start: 20040917
  8. FENTANYL. [Concomitant]
     Active Substance: FENTANYL
     Indication: SYSTEMIC LUPUS ERYTHEMATOSUS
     Dosage: UNK
     Dates: start: 200204, end: 201310

REACTIONS (9)
  - Dysphagia [Not Recovered/Not Resolved]
  - Ischaemic stroke [Not Recovered/Not Resolved]
  - Aphasia [Not Recovered/Not Resolved]
  - VIIth nerve paralysis [Unknown]
  - Impaired self-care [Not Recovered/Not Resolved]
  - Incontinence [Not Recovered/Not Resolved]
  - Hemiparesis [Not Recovered/Not Resolved]
  - Abasia [Not Recovered/Not Resolved]
  - Feeding disorder [Not Recovered/Not Resolved]

NARRATIVE: CASE EVENT DATE: 20120824
